FAERS Safety Report 23758847 (Version 1)
Quarter: 2024Q2

REPORT INFORMATION
  Report Type: Other
  Country: US (occurrence: None)
  Receive Date: 20240418
  Receipt Date: 20240418
  Transmission Date: 20240716
  Serious: No
  Sender: FDA-Public Use
  Company Number: US-ROCHE-3454299

PATIENT
  Age: 9 Year
  Sex: Female

DRUGS (10)
  1. BEVACIZUMAB [Suspect]
     Active Substance: BEVACIZUMAB
     Indication: Retinal arteriovenous malformation
     Dosage: 1.25 MG/0.05 ML
     Route: 050
     Dates: start: 20170606
  2. BEVACIZUMAB [Suspect]
     Active Substance: BEVACIZUMAB
     Indication: Macular oedema
     Dosage: 1.25 MG/0.05 ML, 4.5 MONTHS
     Route: 050
     Dates: start: 20171019
  3. BEVACIZUMAB [Suspect]
     Active Substance: BEVACIZUMAB
     Dosage: 1.25 MG/0.05 ML, 5.5 MONTHS
     Route: 050
     Dates: start: 20180404
  4. BEVACIZUMAB [Suspect]
     Active Substance: BEVACIZUMAB
     Dosage: 1.25 MG/0.05 ML
     Route: 050
     Dates: start: 20181031
  5. BEVACIZUMAB [Suspect]
     Active Substance: BEVACIZUMAB
     Dosage: 1.25 MG/0.05 ML,4.9 MONTHS
     Route: 050
     Dates: start: 20190326
  6. BEVACIZUMAB [Suspect]
     Active Substance: BEVACIZUMAB
     Dosage: 1.25 MG/0.05 ML,5.6 MONTHS
     Route: 050
     Dates: start: 20190912
  7. BEVACIZUMAB [Suspect]
     Active Substance: BEVACIZUMAB
     Dosage: 1.25 MG/0.05 ML,7.4 MONTHS
     Route: 050
     Dates: start: 20200422
  8. BEVACIZUMAB [Suspect]
     Active Substance: BEVACIZUMAB
     Dosage: 1.25 MG/0.05 ML, 6.3 MONTHS
     Route: 050
     Dates: start: 20201029
  9. BEVACIZUMAB [Suspect]
     Active Substance: BEVACIZUMAB
     Dosage: 1.25 MG/0.05 ML, 6.5 MONTHS
     Route: 050
     Dates: start: 20210513
  10. DORZOLAMIDE [Concomitant]
     Active Substance: DORZOLAMIDE
     Route: 061

REACTIONS (3)
  - Off label use [Unknown]
  - Off label use [Unknown]
  - No adverse event [Unknown]
